FAERS Safety Report 23395817 (Version 1)
Quarter: 2024Q1

REPORT INFORMATION
  Report Type: Spontaneous
  Country: KR (occurrence: KR)
  Receive Date: 20240112
  Receipt Date: 20240112
  Transmission Date: 20240410
  Serious: Yes (Hospitalization, Other)
  Sender: FDA-Public Use
  Company Number: KR-MACLEODS PHARMACEUTICALS US LTD-MAC2024045246

PATIENT

DRUGS (4)
  1. LIDOCAINE [Suspect]
     Active Substance: LIDOCAINE
     Indication: Back pain
     Dosage: 1.3 MILLILITER, SINGLE, TOTAL, INJECTION 2% AT 1.3 ML
     Route: 008
  2. TRIAMCINOLONE [Suspect]
     Active Substance: TRIAMCINOLONE
     Indication: Back pain
     Dosage: UNK, SINGLE, APPROXIMATELY LESS THAN 40 MG, INJECTION
     Route: 008
  3. SALINE [Suspect]
     Active Substance: SODIUM CHLORIDE
     Indication: Back pain
     Dosage: UNK UNK, SINGLE
     Route: 008
  4. DEXAMETHASONE [Suspect]
     Active Substance: DEXAMETHASONE
     Indication: Back pain
     Dosage: 0.5 MILLIGRAM, SINGLE, TOTAL, INJECTION
     Route: 008

REACTIONS (4)
  - Monoplegia [Recovering/Resolving]
  - Spinal epidural haemorrhage [Recovering/Resolving]
  - Cauda equina syndrome [Recovering/Resolving]
  - Spinal cord infarction [Not Recovered/Not Resolved]
